FAERS Safety Report 10406907 (Version 4)
Quarter: 2014Q4

REPORT INFORMATION
  Report Type: Report from Study
  Country: DE (occurrence: DE)
  Receive Date: 20140825
  Receipt Date: 20141030
  Transmission Date: 20150528
  Serious: Yes (Other)
  Sender: FDA-Public Use
  Company Number: DE-SA-2014SA100282

PATIENT
  Age: 40 Year
  Sex: Female

DRUGS (1)
  1. AUBAGIO [Suspect]
     Active Substance: TERIFLUNOMIDE
     Indication: MULTIPLE SCLEROSIS
     Route: 048
     Dates: start: 20140618

REACTIONS (6)
  - Tinnitus [Unknown]
  - Paralysis [Recovered/Resolved]
  - Condition aggravated [Recovered/Resolved]
  - Alopecia [Not Recovered/Not Resolved]
  - Influenza like illness [Recovered/Resolved]
  - Back pain [Unknown]

NARRATIVE: CASE EVENT DATE: 2014
